FAERS Safety Report 12962263 (Version 2)
Quarter: 2017Q2

REPORT INFORMATION
  Report Type: Spontaneous
  Country: US (occurrence: US)
  Receive Date: 20161121
  Receipt Date: 20170410
  Transmission Date: 20170830
  Serious: Yes (Other)
  Sender: FDA-Public Use
  Company Number: US-009507513-1610USA015235

PATIENT
  Age: 33 Year
  Sex: Female

DRUGS (11)
  1. ENTACAPONE. [Suspect]
     Active Substance: ENTACAPONE
     Indication: PARKINSONISM
     Dosage: UNK
  2. ROPINIROLE. [Suspect]
     Active Substance: ROPINIROLE
     Indication: FALL
  3. ENTACAPONE. [Suspect]
     Active Substance: ENTACAPONE
     Indication: PARKINSONIAN GAIT
  4. ENTACAPONE. [Suspect]
     Active Substance: ENTACAPONE
     Indication: FALL
  5. ROPINIROLE. [Suspect]
     Active Substance: ROPINIROLE
     Indication: GAIT DISTURBANCE
  6. SINEMET [Suspect]
     Active Substance: CARBIDOPA\LEVODOPA
     Indication: PARKINSONIAN GAIT
     Dosage: UNK
     Route: 048
  7. SINEMET [Suspect]
     Active Substance: CARBIDOPA\LEVODOPA
     Indication: PARKINSONISM
  8. SINEMET [Suspect]
     Active Substance: CARBIDOPA\LEVODOPA
     Indication: FALL
  9. ROPINIROLE. [Suspect]
     Active Substance: ROPINIROLE
     Indication: PARKINSONIAN GAIT
     Dosage: UNK
  10. ROPINIROLE. [Suspect]
     Active Substance: ROPINIROLE
     Indication: PARKINSONISM
  11. ENTACAPONE. [Suspect]
     Active Substance: ENTACAPONE
     Indication: GAIT DISTURBANCE

REACTIONS (3)
  - Drug ineffective [Unknown]
  - Somnolence [Unknown]
  - Confusional state [Unknown]
